FAERS Safety Report 9522323 (Version 2)
Quarter: 2013Q3

REPORT INFORMATION
  Report Type: Spontaneous
  Country: US (occurrence: US)
  Receive Date: 20130913
  Receipt Date: 20130913
  Transmission Date: 20140515
  Serious: Yes (Hospitalization)
  Sender: FDA-Public Use
  Company Number: US-JNJFOC-20130812883

PATIENT
  Age: 85 Year
  Sex: Male
  Weight: 72.58 kg

DRUGS (3)
  1. XARELTO [Suspect]
     Indication: THROMBOSIS
     Dosage: TOOK 15 MG , 1 AND HALF TABLET TWICE DAILY FOR ABOUT ONLY A WEEK.
     Route: 048
     Dates: start: 20130615, end: 201306
  2. XARELTO [Suspect]
     Indication: THROMBOSIS
     Route: 048
     Dates: start: 201306
  3. SYMBICORT [Suspect]
     Indication: ASTHMA
     Route: 055
     Dates: start: 201308

REACTIONS (5)
  - Pulmonary thrombosis [Recovering/Resolving]
  - Inappropriate schedule of drug administration [Recovered/Resolved]
  - Drug prescribing error [Unknown]
  - Therapeutic response unexpected [Not Recovered/Not Resolved]
  - Respiratory tract congestion [Not Recovered/Not Resolved]
